FAERS Safety Report 16647560 (Version 1)
Quarter: 2019Q3

REPORT INFORMATION
  Report Type: Spontaneous
  Country: US (occurrence: US)
  Receive Date: 20190729
  Receipt Date: 20190729
  Transmission Date: 20191004
  Serious: Yes (Other)
  Sender: FDA-Public Use
  Company Number: None

PATIENT
  Age: 4 Year
  Sex: Female
  Weight: 18.9 kg

DRUGS (4)
  1. MIRALAX [Suspect]
     Active Substance: POLYETHYLENE GLYCOL 3350
     Indication: CONSTIPATION
     Route: 048
     Dates: start: 20190522, end: 20190724
  2. FLUORIDE PILL [Concomitant]
  3. MIRALAX [Suspect]
     Active Substance: POLYETHYLENE GLYCOL 3350
     Indication: ENCOPRESIS
     Route: 048
     Dates: start: 20190522, end: 20190724
  4. MULTIVITAMIN GUMMY [Concomitant]

REACTIONS (3)
  - Aggression [None]
  - Speech disorder [None]
  - Abnormal behaviour [None]

NARRATIVE: CASE EVENT DATE: 20190724
